FAERS Safety Report 7603908-9 (Version None)
Quarter: 2011Q3

REPORT INFORMATION
  Report Type: 
  Country: None (occurrence: None)
  Receive Date: 20110712
  Receipt Date: 20110630
  Transmission Date: 20111222
  Serious: Yes (Other)
  Sender: FDA-Public Use
  Company Number: GB-ROCHE-675978

PATIENT
  Sex: Female
  Weight: 56 kg

DRUGS (9)
  1. TEMAZEPAM [Concomitant]
  2. DOXAZOSIN MESYLATE [Concomitant]
  3. PRILOSEC [Concomitant]
  4. ASPIRIN [Concomitant]
     Dates: start: 19950101
  5. ARCOXIA [Concomitant]
     Dates: start: 20090101
  6. FOSAMAX [Concomitant]
  7. METHOTREXATE [Suspect]
     Indication: RHEUMATOID ARTHRITIS
     Dosage: LAST DOSE PRIOR TO SAE: 15 DECEMBER 2009
     Route: 048
     Dates: start: 20091208
  8. TOCILIZUMAB [Suspect]
     Indication: RHEUMATOID ARTHRITIS
     Dosage: FORM : INTRAVENOUS INFUSION
     Route: 042
     Dates: start: 20091208
  9. FOLIC ACID [Concomitant]
     Dates: start: 20090813

REACTIONS (1)
  - TENDON RUPTURE [None]
